FAERS Safety Report 7423281-9 (Version None)
Quarter: 2011Q2

REPORT INFORMATION
  Report Type: 
  Country: None (occurrence: None)
  Receive Date: 20110419
  Receipt Date: 20101210
  Transmission Date: 20111010
  Serious: Yes (Hospitalization)
  Sender: FDA-Public Use
  Company Number: US-BAYER-201029973NA

PATIENT
  Age: 36 Year
  Sex: Female
  Weight: 68 kg

DRUGS (5)
  1. COQ10 [Concomitant]
     Indication: PARKINSON'S DISEASE
     Dates: start: 20081208
  2. AZILECT [Concomitant]
     Indication: PARKINSON'S DISEASE
     Dosage: 1 MG (DAILY DOSE), ,
     Dates: start: 20081208
  3. REQUIP [Concomitant]
     Indication: PARKINSON'S DISEASE
     Dosage: 12 MG (DAILY DOSE), ,
     Dates: start: 20090601
  4. YAZ [Suspect]
     Indication: ORAL CONTRACEPTION
     Route: 048
     Dates: start: 20080701, end: 20081015
  5. MULTI-VITAMIN [Concomitant]
     Dates: start: 20081208

REACTIONS (1)
  - DEEP VEIN THROMBOSIS [None]
